FAERS Safety Report 9025057 (Version 1)
Quarter: 2013Q1

REPORT INFORMATION
  Report Type: Spontaneous
  Country: FR (occurrence: FR)
  Receive Date: 20130121
  Receipt Date: 20130121
  Transmission Date: 20140127
  Serious: Yes (Hospitalization)
  Sender: FDA-Public Use
  Company Number: FR-GENZYME-FABR-1002972

PATIENT
  Age: 38 None
  Sex: Male
  Weight: 63 kg

DRUGS (4)
  1. FABRAZYME [Suspect]
     Indication: FABRY^S DISEASE
     Dosage: 1.1 MG/KG, UNK
     Route: 042
     Dates: start: 20020429, end: 201103
  2. FABRAZYME [Suspect]
     Dosage: 1.1 MG/KG, UNK
     Route: 042
     Dates: start: 20121009
  3. REPLAGAL [Suspect]
     Indication: FABRY^S DISEASE
     Dosage: 14 MG, UNK
     Route: 042
     Dates: start: 20110316, end: 20120924
  4. KARDEGIC [Suspect]
     Indication: PRODUCT USED FOR UNKNOWN INDICATION
     Dosage: 1 DF, QD
     Route: 048
     Dates: start: 20050316

REACTIONS (1)
  - Transient ischaemic attack [Recovered/Resolved]
